FAERS Safety Report 12176082 (Version 1)
Quarter: 2016Q1

REPORT INFORMATION
  Report Type: Spontaneous
  Country: US (occurrence: US)
  Receive Date: 20160314
  Receipt Date: 20160314
  Transmission Date: 20160526
  Serious: No
  Sender: FDA-Public Use
  Company Number: US-ACTAVIS-2015-04737

PATIENT
  Age: 73 Year
  Sex: Female

DRUGS (1)
  1. HYDROCODONE BITARTRATE/ACETAMINOPHEN 10/325 (ACTAVIS LABORATORIES FL) [Suspect]
     Active Substance: ACETAMINOPHEN\HYDROCODONE BITARTRATE
     Indication: TOOTHACHE
     Dosage: 1 DF, Q6H
     Route: 048
     Dates: start: 201411

REACTIONS (1)
  - Drug ineffective [Unknown]
